FAERS Safety Report 4892717-X (Version None)
Quarter: 2006Q1

REPORT INFORMATION
  Report Type: 
  Country: None (occurrence: None)
  Receive Date: 20060126
  Receipt Date: 20051228
  Transmission Date: 20060701
  Serious: Yes (Hospitalization)
  Sender: FDA-Public Use
  Company Number: FR-AVENTIS-200514378FR

PATIENT
  Age: 31 Year
  Sex: Female

DRUGS (3)
  1. KETEK [Suspect]
     Indication: SUPERINFECTION
     Route: 048
     Dates: start: 20050912, end: 20050916
  2. KETEK [Suspect]
     Indication: TONSILLITIS
     Route: 048
     Dates: start: 20050912, end: 20050916
  3. KETEK [Suspect]
     Indication: TRACHEITIS
     Route: 048
     Dates: start: 20050912, end: 20050916

REACTIONS (2)
  - ABORTION SPONTANEOUS [None]
  - DRUG EXPOSURE DURING PREGNANCY [None]
